FAERS Safety Report 11995028 (Version 1)
Quarter: 2016Q1

REPORT INFORMATION
  Report Type: Spontaneous
  Country: US (occurrence: US)
  Receive Date: 20160203
  Receipt Date: 20160203
  Transmission Date: 20160526
  Serious: No
  Sender: FDA-Public Use
  Company Number: US-UCBSA-2014002765

PATIENT
  Age: 44 Year
  Sex: Male

DRUGS (1)
  1. KEPPRA XR [Suspect]
     Active Substance: LEVETIRACETAM
     Indication: SEIZURE
     Dosage: 750 MG / 2 DAILY
     Dates: end: 2014

REACTIONS (4)
  - Adverse drug reaction [Unknown]
  - Headache [Unknown]
  - Drug ineffective [Unknown]
  - Mood swings [Unknown]

NARRATIVE: CASE EVENT DATE: 201404
